FAERS Safety Report 6356692-3 (Version None)
Quarter: 2009Q3

REPORT INFORMATION
  Report Type: 
  Country: None (occurrence: None)
  Receive Date: 20090910
  Receipt Date: 20090910
  Transmission Date: 20100115
  Serious: Yes (Disabling, Other)
  Sender: FDA-Public Use
  Company Number: None

PATIENT
  Sex: Female
  Weight: 131.9967 kg

DRUGS (1)
  1. LAMICTAL [Suspect]
     Indication: CONVULSION
     Dosage: 150MG BID PO USED X2
     Route: 048

REACTIONS (3)
  - ANKLE FRACTURE [None]
  - CONVULSION [None]
  - PRODUCT SUBSTITUTION ISSUE [None]
